FAERS Safety Report 5467371-9 (Version None)
Quarter: 2007Q3

REPORT INFORMATION
  Report Type: 
  Country: None (occurrence: None)
  Receive Date: 20070925
  Receipt Date: 20070913
  Transmission Date: 20080115
  Serious: Yes (Hospitalization, Other)
  Sender: FDA-Public Use
  Company Number: US-PFIZER INC-2007059534

PATIENT
  Age: 77 Year
  Sex: Male

DRUGS (6)
  1. CHANTIX [Suspect]
     Indication: SMOKING CESSATION THERAPY
     Route: 048
     Dates: start: 20070205, end: 20070501
  2. LIPITOR [Concomitant]
     Route: 048
  3. ENALAPRIL MALEATE [Concomitant]
  4. NORVASC [Concomitant]
  5. REMERON [Concomitant]
  6. TOPROL-XL [Concomitant]

REACTIONS (5)
  - ALCOHOL USE [None]
  - DEHYDRATION [None]
  - DROOLING [None]
  - FACIAL PALSY [None]
  - FALL [None]
